FAERS Safety Report 5988669-1 (Version None)
Quarter: 2008Q4

REPORT INFORMATION
  Report Type: 
  Country: None (occurrence: None)
  Receive Date: 20081208
  Receipt Date: 20081208
  Transmission Date: 20090506
  Serious: Yes (Hospitalization)
  Sender: FDA-Public Use
  Company Number: None

PATIENT
  Sex: Male
  Weight: 55.2 kg

DRUGS (1)
  1. CISPLATIN [Suspect]
     Dosage: 362 MG
     Dates: end: 20080923

REACTIONS (4)
  - DEHYDRATION [None]
  - DRUG INEFFECTIVE [None]
  - DYSPHAGIA [None]
  - PAIN [None]
